FAERS Safety Report 7266339-X (Version None)
Quarter: 2011Q1

REPORT INFORMATION
  Report Type: 
  Country: None (occurrence: None)
  Receive Date: 20110120
  Receipt Date: 20110106
  Transmission Date: 20110831
  Serious: Yes (Hospitalization)
  Sender: FDA-Public Use
  Company Number: 025162

PATIENT
  Sex: Female

DRUGS (7)
  1. CIMZIA [Suspect]
     Indication: RHEUMATOID ARTHRITIS
     Dosage: SUBCUTANEOUS
     Route: 058
     Dates: start: 20091119, end: 20101228
  2. PREDNISOLONE [Concomitant]
  3. FAMOTIDINE [Concomitant]
  4. ZALTOPROFEN [Concomitant]
  5. METHOTREXATE [Concomitant]
  6. FOLIC ACID [Concomitant]
  7. ALENDRONATE SODIUM [Concomitant]

REACTIONS (8)
  - BLOOD PRESSURE INCREASED [None]
  - NEUTROPHIL COUNT INCREASED [None]
  - PUPILS UNEQUAL [None]
  - ACTIVATED PARTIAL THROMBOPLASTIN TIME SHORTENED [None]
  - RED BLOOD CELL COUNT DECREASED [None]
  - MEAN CELL VOLUME INCREASED [None]
  - CEREBRAL HAEMORRHAGE [None]
  - WHITE BLOOD CELL COUNT INCREASED [None]
